FAERS Safety Report 10908101 (Version 1)
Quarter: 2015Q1

REPORT INFORMATION
  Report Type: Spontaneous
  Country: US (occurrence: US)
  Receive Date: 20150312
  Receipt Date: 20150312
  Transmission Date: 20150721
  Serious: No
  Sender: FDA-Public Use
  Company Number: US-INCYTE CORPORATION-2015IN000042

PATIENT
  Age: 59 Year
  Sex: Male
  Weight: 77.1 kg

DRUGS (9)
  1. HYDROCORTISONE. [Concomitant]
     Active Substance: HYDROCORTISONE
  2. CYCLOBENZAPRINE [Concomitant]
     Active Substance: CYCLOBENZAPRINE
  3. JAKAFI [Suspect]
     Active Substance: RUXOLITINIB
     Indication: MYELOFIBROSIS
     Dosage: 20 MG, BID
     Route: 048
  4. RANITIDINE [Concomitant]
     Active Substance: RANITIDINE\RANITIDINE HYDROCHLORIDE
  5. DOXEPIN [Concomitant]
     Active Substance: DOXEPIN
  6. IBUPROFEN. [Concomitant]
     Active Substance: IBUPROFEN
  7. ASPIRIN. [Concomitant]
     Active Substance: ASPIRIN
  8. LORATADINE. [Concomitant]
     Active Substance: LORATADINE
  9. HYDROXYZINE [Concomitant]
     Active Substance: HYDROXYZINE\HYDROXYZINE HYDROCHLORIDE

REACTIONS (1)
  - Wound [Unknown]

NARRATIVE: CASE EVENT DATE: 20150107
